FAERS Safety Report 10182005 (Version 1)
Quarter: 2014Q2

REPORT INFORMATION
  Report Type: Spontaneous
  Country: IT (occurrence: IT)
  Receive Date: 20140519
  Receipt Date: 20140519
  Transmission Date: 20141212
  Serious: Yes (Other)
  Sender: FDA-Public Use
  Company Number: IT-TEVA-480298ISR

PATIENT
  Age: 68 Year
  Sex: Female

DRUGS (1)
  1. ANASTRAZOLO TEVA 1 MG [Suspect]
     Indication: HORMONE REPLACEMENT THERAPY
     Dosage: 1 MILLIGRAM DAILY;
     Route: 048

REACTIONS (3)
  - Hypertension [Unknown]
  - Arthralgia [Unknown]
  - Product substitution issue [Unknown]
